FAERS Safety Report 23964823 (Version 1)
Quarter: 2024Q2

REPORT INFORMATION
  Report Type: Report from Study
  Country: IL (occurrence: IL)
  Receive Date: 20240612
  Receipt Date: 20240612
  Transmission Date: 20240716
  Serious: Yes (Hospitalization)
  Sender: FDA-Public Use
  Company Number: IL-ABBVIE-5796168

PATIENT
  Sex: Male

DRUGS (2)
  1. CARBIDOPA\LEVODOPA [Suspect]
     Active Substance: CARBIDOPA\LEVODOPA
     Indication: Parkinson^s disease
     Route: 050
     Dates: start: 20201123
  2. CARBIDOPA\LEVODOPA [Suspect]
     Active Substance: CARBIDOPA\LEVODOPA
     Dosage: MORNING DOSAGE 2ML,CONTINUOUS DOSAGE 2.9ML/H, EXTRA DOSAGE 2ML
     Route: 050

REACTIONS (2)
  - Catheterisation cardiac [Recovering/Resolving]
  - Vascular graft [Unknown]

NARRATIVE: CASE EVENT DATE: 20240101
